FAERS Safety Report 17142714 (Version 1)
Quarter: 2020Q3

REPORT INFORMATION
  Report Type: Spontaneous
  Country: US (occurrence: US)
  Receive Date: 20191119
  Receipt Date: 20191119
  Transmission Date: 20201104
  Serious: No
  Sender: FDA-Public Use
  Company Number: None

PATIENT
  Age: 65 Year
  Sex: Male
  Weight: 121 kg

DRUGS (1)
  1. NETARSUDIL. [Suspect]
     Active Substance: NETARSUDIL
     Dosage: ?          OTHER FREQUENCY:PM;?
     Route: 031
     Dates: start: 20190713, end: 20190805

REACTIONS (3)
  - Erythema [None]
  - Ocular discomfort [None]
  - Vision blurred [None]

NARRATIVE: CASE EVENT DATE: 20190805
